FAERS Safety Report 14479973 (Version 1)
Quarter: 2018Q1

REPORT INFORMATION
  Report Type: Spontaneous
  Country: US (occurrence: US)
  Receive Date: 20180202
  Receipt Date: 20180202
  Transmission Date: 20180509
  Serious: No
  Sender: FDA-Public Use
  Company Number: US-ORPHAN EUROPE-2041283

PATIENT
  Age: 22 Year
  Sex: Female

DRUGS (3)
  1. CYSTADANE [Suspect]
     Active Substance: BETAINE
  2. FOLIC ACID. [Concomitant]
     Active Substance: FOLIC ACID
  3. CYSTADANE [Suspect]
     Active Substance: BETAINE
     Indication: PRODUCT USED FOR UNKNOWN INDICATION
     Dates: start: 2012

REACTIONS (3)
  - Oropharyngeal pain [Recovering/Resolving]
  - Inappropriate schedule of drug administration [Recovered/Resolved]
  - Drug dose omission [Recovered/Resolved]

NARRATIVE: CASE EVENT DATE: 20170606
